FAERS Safety Report 17203865 (Version 1)
Quarter: 2019Q4

REPORT INFORMATION
  Report Type: Spontaneous
  Country: SE (occurrence: SE)
  Receive Date: 20191226
  Receipt Date: 20191226
  Transmission Date: 20200122
  Serious: Yes (Hospitalization)
  Sender: FDA-Public Use
  Company Number: SE-MYLANLABS-2019M1127366

PATIENT
  Sex: Female

DRUGS (3)
  1. LERGIGAN (PROMETHAZINE) [Suspect]
     Active Substance: PROMETHAZINE HYDROCHLORIDE
     Indication: PRODUCT USED FOR UNKNOWN INDICATION
     Dosage: 7 ST A 25 MG
     Route: 048
     Dates: start: 20190614, end: 20190614
  2. IMOVANE [Concomitant]
     Active Substance: ZOPICLONE
     Dosage: 1
     Dates: start: 20190614, end: 20190614
  3. ESCITALOPRAM [Concomitant]
     Active Substance: ESCITALOPRAM OXALATE
     Dosage: UNK
     Dates: start: 20190614, end: 20190614

REACTIONS (3)
  - Intentional overdose [Unknown]
  - Intentional self-injury [Unknown]
  - Fatigue [Unknown]

NARRATIVE: CASE EVENT DATE: 20190614
